FAERS Safety Report 4300624-6 (Version None)
Quarter: 2004Q1

REPORT INFORMATION
  Report Type: 
  Country: None (occurrence: None)
  Receive Date: 20040218
  Receipt Date: 20040206
  Transmission Date: 20041129
  Serious: Yes (Death)
  Sender: FDA-Public Use
  Company Number: 03P-163-0245995-00

PATIENT
  Age: 79 Year
  Sex: Female

DRUGS (12)
  1. HUMIRA [Suspect]
     Indication: RHEUMATOID ARTHRITIS
     Dosage: 40 MG, 1 IN 2 WK, SUBCUTANEOUS
     Route: 058
     Dates: start: 20031006
  2. AMLODIPINE BESYLATE [Concomitant]
  3. BENAZEPRIL HCL [Concomitant]
  4. HYDROCHLOROTHIAZIDE [Concomitant]
  5. XANATAN [Concomitant]
  6. ALENDRONATE SODIUM [Concomitant]
  7. CALCIUM [Concomitant]
  8. RANITIDINE [Concomitant]
  9. PREDNISONE [Concomitant]
  10. COUMADIN [Concomitant]
  11. HYDROMORPHONE HYDROCHLORIDE [Concomitant]
  12. CELECOXIB [Concomitant]

REACTIONS (1)
  - PNEUMONIA [None]
